FAERS Safety Report 9026584 (Version 4)
Quarter: 2013Q3

REPORT INFORMATION
  Report Type: Report from Study
  Country: US (occurrence: US)
  Receive Date: 20130123
  Receipt Date: 20130908
  Transmission Date: 20140515
  Serious: Yes (Other)
  Sender: FDA-Public Use
  Company Number: PHEH2013US001193

PATIENT
  Age: 20 Year
  Sex: Female

DRUGS (4)
  1. AFINITOR [Suspect]
     Indication: ANGIOMYOLIPOMA
     Dosage: 10 MG, DAILY
     Route: 048
     Dates: start: 20121006
  2. FOLIC ACID [Concomitant]
     Indication: ANAEMIA
     Dosage: 1 MG, QD
     Route: 048
  3. HYDROCHLOORTHIAZIDE [Concomitant]
     Indication: BLOOD PRESSURE INCREASED
     Dosage: 25 MG, QD
     Route: 048
  4. MIRACLE MINERAL SOLUTION [Concomitant]

REACTIONS (10)
  - Lung neoplasm [Unknown]
  - Feeling hot [Not Recovered/Not Resolved]
  - Parosmia [Not Recovered/Not Resolved]
  - Stomatitis [Recovering/Resolving]
  - Red blood cell count decreased [Not Recovered/Not Resolved]
  - Gingival swelling [Recovering/Resolving]
  - Lip swelling [Not Recovered/Not Resolved]
  - Epistaxis [Recovered/Resolved]
  - Headache [Not Recovered/Not Resolved]
  - Vomiting [Recovered/Resolved]
